FAERS Safety Report 13040663 (Version 1)
Quarter: 2016Q4

REPORT INFORMATION
  Report Type: Spontaneous
  Country: US (occurrence: US)
  Receive Date: 20161219
  Receipt Date: 20161219
  Transmission Date: 20170207
  Serious: Yes (Other)
  Sender: FDA-Public Use
  Company Number: None

PATIENT
  Age: 90 Year
  Sex: Male
  Weight: 76.5 kg

DRUGS (7)
  1. LATANOPROST. [Concomitant]
     Active Substance: LATANOPROST
  2. AZELASTINE [Concomitant]
     Active Substance: AZELASTINE
  3. COUMADIN [Concomitant]
     Active Substance: WARFARIN SODIUM
  4. TIKOSYN [Concomitant]
     Active Substance: DOFETILIDE
  5. BRIMIONIDINE 0.15% SANDOZ [Suspect]
     Active Substance: BRIMONIDINE TARTRATE
     Indication: GLAUCOMA
     Route: 047
     Dates: start: 20161017, end: 20161214
  6. DILTIAZEM. [Concomitant]
     Active Substance: DILTIAZEM
  7. ALOPURINOL [Concomitant]
     Active Substance: ALLOPURINOL

REACTIONS (1)
  - Hypotension [None]

NARRATIVE: CASE EVENT DATE: 20161213
